FAERS Safety Report 5894613-8 (Version None)
Quarter: 2008Q3

REPORT INFORMATION
  Report Type: 
  Country: None (occurrence: None)
  Receive Date: 20080922
  Receipt Date: 20080904
  Transmission Date: 20090109
  Serious: Yes (Other)
  Sender: FDA-Public Use
  Company Number: 1-16600186

PATIENT
  Age: 21 Year
  Sex: Female
  Weight: 63.5036 kg

DRUGS (2)
  1. SOLODYN [Suspect]
     Indication: ACNE
     Dosage: 90 MG DAILY ORAL
     Route: 048
     Dates: start: 20080610, end: 20080701
  2. IRON SUPPLEMENTS [Concomitant]

REACTIONS (7)
  - BLOOD IRON DECREASED [None]
  - DYSPEPSIA [None]
  - HEPATOMEGALY [None]
  - LIVER FUNCTION TEST ABNORMAL [None]
  - LOSS OF CONSCIOUSNESS [None]
  - PAIN [None]
  - SPLENOMEGALY [None]
